FAERS Safety Report 10367938 (Version 1)
Quarter: 2014Q3

REPORT INFORMATION
  Report Type: Spontaneous
  Country: KR (occurrence: None)
  Receive Date: 20140805
  Receipt Date: 20140805
  Transmission Date: 20150326
  Serious: Yes (Hospitalization)
  Sender: FDA-Public Use
  Company Number: FK201403097

PATIENT
  Age: 60 Year
  Sex: Male

DRUGS (4)
  1. METHOTREXATE (MANUFACTURER UNKNOWN) (METHOTREXATE) (METHOTREXATE) [Suspect]
     Active Substance: METHOTREXATE
     Indication: ACUTE PROMYELOCYTIC LEUKAEMIA
     Dosage: 20 M?15 MG/M2, 1 IN 1 WK
  2. IDARUBICIN HYDROCHLORIDE (MANUFACTURER UNKNOWN) (IDARUBICIN HYDROCHLORIDE) (IDARUBICIN HYDROCHLORIDE) [Suspect]
     Active Substance: IDARUBICIN HYDROCHLORIDE
     Indication: ACUTE PROMYELOCYTIC LEUKAEMIA
     Dates: start: 201001, end: 201004
  3. MERCAPTOPURINE (MERCAPTOPURINE) (MERCAPTOPURINE) [Suspect]
     Active Substance: MERCAPTOPURINE
     Indication: ACUTE PROMYELOCYTIC LEUKAEMIA
     Dosage: 20 M?90 MG/M2, 1 IN 1 D
  4. ATRA (RETINOIC ACID) (RETINOIC ACID) [Suspect]
     Active Substance: TRETINOIN
     Indication: ACUTE PROMYELOCYTIC LEUKAEMIA
     Dosage: 200 MG/M2, FOR 7 DAYS
     Dates: start: 201001, end: 201004

REACTIONS (1)
  - Acute myeloid leukaemia [None]
